FAERS Safety Report 4577370-7 (Version None)
Quarter: 2005Q1

REPORT INFORMATION
  Report Type: 
  Country: None (occurrence: None)
  Receive Date: 20050210
  Receipt Date: 20050128
  Transmission Date: 20050727
  Serious: Yes (Other)
  Sender: FDA-Public Use
  Company Number: AU-GLAXOSMITHKLINE-B0370004A

PATIENT
  Age: 39 Year
  Sex: Female

DRUGS (2)
  1. IMIGRAN [Suspect]
     Indication: ILL-DEFINED DISORDER
  2. AURORIX [Concomitant]
     Indication: DEPRESSION
     Dosage: 300MG PER DAY
     Dates: start: 20031015

REACTIONS (6)
  - ARTERIOSPASM CORONARY [None]
  - CHEST PAIN [None]
  - DYSPNOEA [None]
  - HYPERHIDROSIS [None]
  - NAUSEA [None]
  - PALPITATIONS [None]
